FAERS Safety Report 14247260 (Version 1)
Quarter: 2017Q4

REPORT INFORMATION
  Report Type: Spontaneous
  Country: RU (occurrence: RU)
  Receive Date: 20171204
  Receipt Date: 20171204
  Transmission Date: 20180321
  Serious: Yes (Death, Other)
  Sender: FDA-Public Use
  Company Number: RU-SHIRE-6J201730947

PATIENT

DRUGS (1)
  1. ELAPRASE [Suspect]
     Active Substance: IDURSULFASE
     Indication: PRODUCT USED FOR UNKNOWN INDICATION
     Dosage: 0.5 MG/KG, EVERY WEEK
     Route: 042
     Dates: start: 20130310, end: 20171116

REACTIONS (1)
  - Cardiac failure [Fatal]
